FAERS Safety Report 4791139-X (Version None)
Quarter: 2005Q4

REPORT INFORMATION
  Report Type: 
  Country: None (occurrence: None)
  Receive Date: 20051005
  Receipt Date: 20050915
  Transmission Date: 20060501
  Serious: Yes (Hospitalization)
  Sender: FDA-Public Use
  Company Number: EWC050945854

PATIENT
  Age: 63 Year
  Sex: Male

DRUGS (3)
  1. ALIMTA [Suspect]
     Indication: NON-SMALL CELL LUNG CANCER
     Dosage: 500 MG
     Dates: start: 20050512, end: 20050512
  2. BEHEPAN (CYANOCOBALAMIN) [Concomitant]
  3. VITAPLEX MINERAL [Concomitant]

REACTIONS (3)
  - C-REACTIVE PROTEIN INCREASED [None]
  - NEUTROPENIA [None]
  - PYREXIA [None]
